FAERS Safety Report 16657267 (Version 1)
Quarter: 2019Q3

REPORT INFORMATION
  Report Type: Spontaneous
  Country: FR (occurrence: FR)
  Receive Date: 20190801
  Receipt Date: 20190801
  Transmission Date: 20191004
  Serious: Yes (Hospitalization)
  Sender: FDA-Public Use
  Company Number: FR-ASTRAZENECA-2019SF07441

PATIENT
  Age: 42 Year
  Sex: Female

DRUGS (7)
  1. KETAMINE [Suspect]
     Active Substance: KETAMINE
     Indication: ANAESTHESIA
     Dosage: 30.0MG UNKNOWN
     Route: 042
     Dates: start: 20190709, end: 20190709
  2. CEFAZOLIN [Suspect]
     Active Substance: CEFAZOLIN
     Indication: SURGERY
     Dosage: 4.0G UNKNOWN
     Route: 042
     Dates: start: 20190709, end: 20190709
  3. DEXAMETHASONE. [Suspect]
     Active Substance: DEXAMETHASONE
     Indication: SURGERY
     Dosage: 8.0MG UNKNOWN
     Route: 042
     Dates: start: 20190709, end: 20190709
  4. PROPOFOL. [Suspect]
     Active Substance: PROPOFOL
     Indication: ANAESTHESIA
     Dosage: 350.0MG UNKNOWN
     Route: 042
     Dates: start: 20190709, end: 20190709
  5. LIDOCAINE. [Suspect]
     Active Substance: LIDOCAINE
     Indication: ANAESTHESIA
     Route: 042
     Dates: start: 20190709, end: 20190709
  6. SUFENTANIL [Suspect]
     Active Substance: SUFENTANIL
     Indication: ANAESTHESIA
     Dosage: 60UG/INHAL
     Route: 042
     Dates: start: 20190709, end: 20190709
  7. ROSUVASTATIN. [Suspect]
     Active Substance: ROSUVASTATIN
     Indication: ANTIBIOTIC PROPHYLAXIS
     Dosage: 80.0MG UNKNOWN
     Route: 048
     Dates: start: 20190709, end: 20190709

REACTIONS (1)
  - Anaphylactic shock [Recovered/Resolved]

NARRATIVE: CASE EVENT DATE: 20190709
